FAERS Safety Report 10203268 (Version 1)
Quarter: 2014Q2

REPORT INFORMATION
  Report Type: Spontaneous
  Country: CA (occurrence: CA)
  Receive Date: 20140529
  Receipt Date: 20140529
  Transmission Date: 20141212
  Serious: Yes (Other)
  Sender: FDA-Public Use
  Company Number: CA-AMGEN-CANSP2014039138

PATIENT
  Age: 70 Year
  Sex: Female

DRUGS (14)
  1. ENBREL [Suspect]
     Indication: RHEUMATOID ARTHRITIS
     Dosage: 50 MG, UNK
     Route: 065
     Dates: start: 20100731
  2. NITRO                              /00003201/ [Concomitant]
     Dosage: UNK UNK, AS NECESSARY
  3. RABEPRAZOLE [Concomitant]
     Dosage: UNK
  4. PREDNISONE [Concomitant]
     Dosage: 2.5 MG PER DAY
  5. ZESTRIL [Concomitant]
     Dosage: 15 MG PER DAY
  6. NATURAL TEARS [Concomitant]
     Dosage: UNK
  7. CALCIUM SANDOZ                     /00060701/ [Concomitant]
     Dosage: UNK
  8. VITAMIN D                          /00107901/ [Concomitant]
     Dosage: UNK
  9. ACTONEL [Concomitant]
     Dosage: UNK
  10. TYLENOL EXTRA STRENGTH [Concomitant]
     Dosage: UNK UNK, AS NECESSARY
  11. ASA [Concomitant]
     Dosage: ASA81 SERC
  12. LEFLUNOMIDE [Concomitant]
     Dosage: UNK
  13. ZOPICLONE [Concomitant]
     Dosage: UNK
  14. FERROUS GLUCONATE [Concomitant]
     Dosage: UNK

REACTIONS (9)
  - Skin lesion [Unknown]
  - Deafness [Unknown]
  - Squamous cell carcinoma of skin [Unknown]
  - Fatigue [Unknown]
  - Feeling abnormal [Unknown]
  - Discomfort [Unknown]
  - Visual acuity reduced [Unknown]
  - Eye swelling [Unknown]
  - Secretion discharge [Unknown]
